FAERS Safety Report 25314180 (Version 1)
Quarter: 2025Q2

REPORT INFORMATION
  Report Type: Spontaneous
  Country: US (occurrence: None)
  Receive Date: 20250514
  Receipt Date: 20250514
  Transmission Date: 20250717
  Serious: Yes (Disabling)
  Sender: FDA-CTU
  Company Number: None

PATIENT
  Age: 30 Year
  Sex: Male
  Weight: 67.5 kg

DRUGS (1)
  1. FINASTERIDE [Suspect]
     Active Substance: FINASTERIDE
     Indication: Alopecia
     Dates: start: 20240720, end: 20241227

REACTIONS (5)
  - Insomnia [None]
  - Sexual dysfunction [None]
  - Erectile dysfunction [None]
  - Genital paraesthesia [None]
  - Loss of libido [None]

NARRATIVE: CASE EVENT DATE: 20250101
